FAERS Safety Report 23715640 (Version 2)
Quarter: 2024Q2

REPORT INFORMATION
  Report Type: Spontaneous
  Country: CN (occurrence: None)
  Receive Date: 20240408
  Receipt Date: 20240508
  Transmission Date: 20240716
  Serious: Yes (Other)
  Sender: FDA-Public Use
  Company Number: CN-ROCHE-3536354

PATIENT
  Age: 42 Year
  Sex: Female

DRUGS (11)
  1. HERCEPTIN [Suspect]
     Active Substance: TRASTUZUMAB
     Indication: Invasive breast carcinoma
     Route: 065
     Dates: start: 201804, end: 201906
  2. HERCEPTIN [Suspect]
     Active Substance: TRASTUZUMAB
     Dosage: TARGETED THERAPY
     Route: 065
     Dates: start: 201804, end: 201906
  3. EPIRUBICIN [Concomitant]
     Active Substance: EPIRUBICIN
     Indication: Invasive breast carcinoma
     Dates: start: 201804, end: 201906
  4. INVESTIGATIONAL PRODUCT [Concomitant]
     Active Substance: INVESTIGATIONAL PRODUCT
     Indication: Invasive breast carcinoma
     Dosage: 8 MG/KG FIRST, FOLLOWED BY 6 MG/KG, ON DAY 1, EVERY 3 WEEKS, 8CYCLES
     Route: 041
     Dates: start: 202006
  5. INVESTIGATIONAL PRODUCT [Concomitant]
     Active Substance: INVESTIGATIONAL PRODUCT
     Dosage: ON DAY 1, EVERY 3 WEEKS
     Route: 041
     Dates: start: 202102, end: 202208
  6. PYROTINIB [Concomitant]
     Active Substance: PYROTINIB
     Indication: Invasive breast carcinoma
     Dosage: 8 CYCLES
     Route: 048
     Dates: start: 202006
  7. PYROTINIB [Concomitant]
     Active Substance: PYROTINIB
     Route: 048
     Dates: start: 202102, end: 202208
  8. VINORELBINE [Concomitant]
     Active Substance: VINORELBINE TARTRATE
     Indication: Invasive breast carcinoma
     Dosage: ON DAY 1 AND DAY 8, EVERY 3 WEEKS, 8CYCLES
     Route: 041
     Dates: start: 202006
  9. EXEMESTANE [Concomitant]
     Active Substance: EXEMESTANE
     Indication: Invasive breast carcinoma
     Route: 048
     Dates: start: 202102, end: 202208
  10. CYCLOPHOSPHAMIDE [Concomitant]
     Active Substance: CYCLOPHOSPHAMIDE
     Indication: Invasive breast carcinoma
     Dates: start: 201804, end: 201906
  11. PACLITAXEL [Concomitant]
     Active Substance: PACLITAXEL
     Indication: Invasive breast carcinoma
     Dates: start: 201804, end: 201906

REACTIONS (4)
  - White blood cell count decreased [Recovering/Resolving]
  - Breast cancer metastatic [Unknown]
  - Drug resistance [Unknown]
  - Diarrhoea [Recovering/Resolving]
